FAERS Safety Report 6344529-8 (Version None)
Quarter: 2009Q3

REPORT INFORMATION
  Report Type: 
  Country: None (occurrence: None)
  Receive Date: 20090908
  Receipt Date: 20090826
  Transmission Date: 20100115
  Serious: Yes (Hospitalization)
  Sender: FDA-Public Use
  Company Number: DE-PFIZER INC-2009259726

PATIENT
  Age: 63 Year

DRUGS (1)
  1. SUNITINIB MALATE [Suspect]
     Indication: PANCREATIC NEUROENDOCRINE TUMOUR
     Dosage: 50 MG, 1X/DAY
     Route: 048
     Dates: start: 20080701

REACTIONS (3)
  - CONFUSIONAL STATE [None]
  - DIARRHOEA [None]
  - OEDEMA [None]
